FAERS Safety Report 11985479 (Version 3)
Quarter: 2017Q1

REPORT INFORMATION
  Report Type: Spontaneous
  Country: US (occurrence: US)
  Receive Date: 20160201
  Receipt Date: 20170314
  Transmission Date: 20170428
  Serious: Yes (Other)
  Sender: FDA-Public Use
  Company Number: US-ELI_LILLY_AND_COMPANY-US201601009692

PATIENT
  Sex: Female
  Weight: 67 kg

DRUGS (6)
  1. ABILIFY [Concomitant]
     Active Substance: ARIPIPRAZOLE
     Indication: PRODUCT USED FOR UNKNOWN INDICATION
     Dosage: 2 MG, UNKNOWN
     Route: 065
  2. CYMBALTA [Suspect]
     Active Substance: DULOXETINE HYDROCHLORIDE
     Dosage: 60 MG, QD
     Route: 065
  3. CYMBALTA [Suspect]
     Active Substance: DULOXETINE HYDROCHLORIDE
     Dosage: 20 MG, EACH MORNING
     Route: 065
     Dates: start: 20140507
  4. CYMBALTA [Suspect]
     Active Substance: DULOXETINE HYDROCHLORIDE
     Indication: MAJOR DEPRESSION
     Dosage: UNK, UNKNOWN
     Route: 065
     Dates: start: 2007
  5. CYMBALTA [Suspect]
     Active Substance: DULOXETINE HYDROCHLORIDE
     Dosage: 30 MG, QD
     Route: 065
  6. CYMBALTA [Suspect]
     Active Substance: DULOXETINE HYDROCHLORIDE
     Indication: PAIN
     Dosage: 30 MG, QD
     Route: 065

REACTIONS (19)
  - Memory impairment [Unknown]
  - Insomnia [Unknown]
  - Pyrexia [Unknown]
  - Feeling cold [Unknown]
  - Sleep disorder [Unknown]
  - Paraesthesia [Unknown]
  - Tremor [Unknown]
  - Nausea [Unknown]
  - Headache [Unknown]
  - Disturbance in attention [Unknown]
  - Hypomania [Unknown]
  - Dizziness [Unknown]
  - Hyperhidrosis [Unknown]
  - Affect lability [Unknown]
  - Fatigue [Unknown]
  - Vomiting [Unknown]
  - Vertigo [Unknown]
  - Withdrawal syndrome [Unknown]
  - Influenza like illness [Unknown]
